FAERS Safety Report 9826928 (Version 1)
Quarter: 2014Q1

REPORT INFORMATION
  Report Type: Spontaneous
  Country: US (occurrence: US)
  Receive Date: 20140117
  Receipt Date: 20140117
  Transmission Date: 20141002
  Serious: No
  Sender: FDA-Public Use
  Company Number: US-GLAXOSMITHKLINE-A1018717A

PATIENT
  Age: 58 Year
  Sex: Female

DRUGS (8)
  1. PROMACTA [Suspect]
     Indication: IMMUNE THROMBOCYTOPENIC PURPURA
     Dosage: 25MG PER DAY
     Route: 048
     Dates: start: 201211
  2. GLIPIZIDE [Suspect]
  3. BABY ASPIRIN [Concomitant]
  4. LISINOPRIL [Concomitant]
  5. POLYVIFLOR W/ IRON [Concomitant]
  6. OMEPRAZOLE [Concomitant]
  7. NADOLOL [Concomitant]
  8. MULTIVITAMIN [Concomitant]

REACTIONS (3)
  - Influenza [Not Recovered/Not Resolved]
  - Local swelling [Not Recovered/Not Resolved]
  - Weight increased [Not Recovered/Not Resolved]
